FAERS Safety Report 8487213 (Version 2)
Quarter: 2015Q2

REPORT INFORMATION
  Report Type: Spontaneous
  Country: US (occurrence: US)
  Receive Date: 20120402
  Receipt Date: 20150408
  Transmission Date: 20150821
  Serious: Yes (Congenital Anomaly)
  Sender: FDA-Public Use
  Company Number: US-ELI_LILLY_AND_COMPANY-US201203007476

PATIENT

DRUGS (2)
  1. PROZAC [Suspect]
     Active Substance: FLUOXETINE HYDROCHLORIDE
     Indication: PRODUCT USED FOR UNKNOWN INDICATION
     Dosage: UNK
     Route: 064
  2. PREVACID [Concomitant]
     Active Substance: LANSOPRAZOLE

REACTIONS (3)
  - Autism [Unknown]
  - Foetal exposure during pregnancy [Recovered/Resolved with Sequelae]
  - Heart disease congenital [Unknown]
